FAERS Safety Report 9522136 (Version 1)
Quarter: 2013Q3

REPORT INFORMATION
  Report Type: Spontaneous
  Country: US (occurrence: None)
  Receive Date: 20130827
  Receipt Date: 20130827
  Transmission Date: 20140515
  Serious: Yes (Hospitalization)
  Sender: FDA-Public Use
  Company Number: 2013037643

PATIENT
  Age: 41 Year
  Sex: Female

DRUGS (1)
  1. HIZENTRA (IMMUNOGLOBULIN HUMAN NORMAL) [Suspect]
     Indication: IMMUNODEFICIENCY COMMON VARIABLE
     Route: 058
     Dates: start: 20110801

REACTIONS (6)
  - Hypoaesthesia [None]
  - Confusional state [None]
  - Dysphemia [None]
  - Memory impairment [None]
  - Erythema [None]
  - Pharyngeal oedema [None]
